FAERS Safety Report 12646467 (Version 2)
Quarter: 2016Q3

REPORT INFORMATION
  Report Type: Spontaneous
  Country: AU (occurrence: AU)
  Receive Date: 20160812
  Receipt Date: 20160812
  Transmission Date: 20161109
  Serious: Yes (Other)
  Sender: FDA-Public Use
  Company Number: AU-009507513-1608AUS002716

PATIENT

DRUGS (1)
  1. PEMBROLIZUMAB. [Suspect]
     Active Substance: PEMBROLIZUMAB
     Indication: MALIGNANT MELANOMA

REACTIONS (4)
  - Gastrointestinal haemorrhage [Recovered/Resolved]
  - Malignant neoplasm progression [Unknown]
  - Nephritis [Unknown]
  - Hypertension [Unknown]

NARRATIVE: CASE EVENT DATE: 2016
